FAERS Safety Report 24967536 (Version 3)
Quarter: 2025Q3

REPORT INFORMATION
  Report Type: Report from Study
  Country: US (occurrence: US)
  Receive Date: 20250214
  Receipt Date: 20250803
  Transmission Date: 20251020
  Serious: Yes (Death, Hospitalization, Other)
  Sender: ALEXION PHARMACEUTICALS
  Company Number: US-AstraZeneca-CH-00806199A

PATIENT
  Age: 73 Year
  Sex: Male
  Weight: 94.785 kg

DRUGS (2)
  1. DAPAGLIFLOZIN [Suspect]
     Active Substance: DAPAGLIFLOZIN
     Route: 065
  2. METOPROLOL TARTRATE [Suspect]
     Active Substance: METOPROLOL TARTRATE
     Route: 065

REACTIONS (15)
  - Death [Fatal]
  - Cardiogenic shock [Unknown]
  - Aortic valve stenosis [Unknown]
  - Acute respiratory failure [Unknown]
  - Respiratory distress [Unknown]
  - Pulmonary oedema [Unknown]
  - Arrhythmia [Unknown]
  - Cardiac arrest [Unknown]
  - Cardiac failure congestive [Unknown]
  - Hypotension [Unknown]
  - Ischaemia [Unknown]
  - Tachycardia [Unknown]
  - Acute coronary syndrome [Unknown]
  - Myocardial infarction [Unknown]
  - Ventricular tachycardia [Unknown]
